FAERS Safety Report 18268828 (Version 1)
Quarter: 2020Q3

REPORT INFORMATION
  Report Type: Spontaneous
  Country: AU (occurrence: AU)
  Receive Date: 20200915
  Receipt Date: 20200915
  Transmission Date: 20201103
  Serious: No
  Sender: FDA-Public Use
  Company Number: ADE 2020-28-NOVA

PATIENT
  Age: 47 Year
  Sex: Male

DRUGS (1)
  1. PARACETAMOL MOLECULE FROM AUSTRALIA [Suspect]
     Active Substance: ACETAMINOPHEN
     Route: 048
     Dates: start: 20200719

REACTIONS (3)
  - Dizziness [Unknown]
  - Lip swelling [None]
  - Diarrhoea [Unknown]

NARRATIVE: CASE EVENT DATE: 20200719
